FAERS Safety Report 8758604 (Version 3)
Quarter: 2012Q4

REPORT INFORMATION
  Report Type: 
  Country: TR (occurrence: TR)
  Receive Date: 20120829
  Receipt Date: 20121009
  Transmission Date: 20130627
  Serious: Yes (Hospitalization)
  Sender: FDA-Public Use
  Company Number: PHHY2012TR065916

PATIENT
  Age: 50 Year
  Sex: Female

DRUGS (3)
  1. TASIGNA [Suspect]
     Indication: CHRONIC MYELOID LEUKAEMIA
     Dosage: 400 mg, BID
     Route: 048
     Dates: start: 20111225, end: 20120803
  2. TASIGNA [Suspect]
     Dates: start: 20120924
  3. DODEX [Concomitant]
     Indication: VITAMIN B12 DEFICIENCY
     Route: 030
     Dates: start: 20120803

REACTIONS (2)
  - Pancytopenia [Recovering/Resolving]
  - Platelet count decreased [Recovered/Resolved]
